FAERS Safety Report 8234744-0 (Version None)
Quarter: 2012Q1

REPORT INFORMATION
  Report Type: 
  Country: None (occurrence: None)
  Receive Date: 20120326
  Receipt Date: 20120313
  Transmission Date: 20120608
  Serious: Yes (Hospitalization, Other)
  Sender: FDA-Public Use
  Company Number: US-SANOFI-AVENTIS-2012SA017252

PATIENT
  Sex: Male

DRUGS (2)
  1. AMBIEN [Suspect]
     Route: 048
  2. AMBIEN [Suspect]
     Route: 048
     Dates: start: 20110101

REACTIONS (6)
  - LOWER LIMB FRACTURE [None]
  - DRUG INEFFECTIVE [None]
  - SOMNAMBULISM [None]
  - FALL [None]
  - PRODUCT QUALITY ISSUE [None]
  - WRONG TECHNIQUE IN DRUG USAGE PROCESS [None]
